FAERS Safety Report 7233536-9 (Version None)
Quarter: 2011Q1

REPORT INFORMATION
  Report Type: 
  Country: None (occurrence: None)
  Receive Date: 20110107
  Receipt Date: 20101230
  Transmission Date: 20110831
  Serious: Yes (Death)
  Sender: FDA-Public Use
  Company Number: DSA_44608_2011

PATIENT
  Sex: Female

DRUGS (1)
  1. XENAZINE [Suspect]
     Indication: DYSTONIA
     Dosage: (25 MG BID ORAL)
     Route: 048
     Dates: start: 20090212

REACTIONS (1)
  - DEATH [None]
